FAERS Safety Report 20025368 (Version 1)
Quarter: 2021Q4

REPORT INFORMATION
  Report Type: Report from Study
  Country: US (occurrence: US)
  Receive Date: 20211102
  Receipt Date: 20211102
  Transmission Date: 20220303
  Serious: Yes (Other)
  Sender: FDA-Public Use
  Company Number: US-JAZZ-2021-US-016265

PATIENT
  Sex: Male

DRUGS (2)
  1. XYREM [Suspect]
     Active Substance: SODIUM OXYBATE
     Indication: Narcolepsy
     Dosage: UNKNOWN DOSE AND FREQUENCY
     Route: 048
     Dates: start: 2021, end: 2021
  2. XYREM [Suspect]
     Active Substance: SODIUM OXYBATE
     Dosage: REDUCED DOSE
     Route: 048
     Dates: start: 2021

REACTIONS (1)
  - Cataplexy [Recovered/Resolved]

NARRATIVE: CASE EVENT DATE: 20210101
